FAERS Safety Report 21663936 (Version 1)
Quarter: 2022Q4

REPORT INFORMATION
  Report Type: Spontaneous
  Country: US (occurrence: None)
  Receive Date: 20221130
  Receipt Date: 20221130
  Transmission Date: 20230113
  Serious: No
  Sender: FDA-Public Use
  Company Number: None

PATIENT
  Age: 30 Year
  Sex: Female
  Weight: 62.14 kg

DRUGS (1)
  1. KYLEENA [Suspect]
     Active Substance: LEVONORGESTREL
     Dates: start: 20190601, end: 20221129

REACTIONS (3)
  - Dyspareunia [None]
  - Muscle spasms [None]
  - Adnexa uteri pain [None]

NARRATIVE: CASE EVENT DATE: 20221101
